FAERS Safety Report 7303690-9 (Version None)
Quarter: 2011Q1

REPORT INFORMATION
  Report Type: 
  Country: None (occurrence: None)
  Receive Date: 20110221
  Receipt Date: 20110210
  Transmission Date: 20110831
  Serious: Yes (Hospitalization, Other)
  Sender: FDA-Public Use
  Company Number: IT-ROCHE-729635

PATIENT
  Sex: Female
  Weight: 46 kg

DRUGS (24)
  1. METHOXY POLYETHYLENE GLYCOL-EPOETIN BETA [Suspect]
     Dosage: LAST DOSE PRIOR TO SAE: 16 JUNE 2010, DOSAGE FORM: PFS
     Route: 042
     Dates: start: 20100414
  2. LANSOPRAZOLE [Concomitant]
     Dates: start: 20060630
  3. ASPIRIN [Concomitant]
     Dates: start: 20091226
  4. PARACETAMOL [Concomitant]
     Dates: start: 20101006
  5. FUROSEMIDE [Concomitant]
     Dates: start: 20020630
  6. TELMISARTAN [Concomitant]
     Dates: start: 20100122
  7. METHOXY POLYETHYLENE GLYCOL-EPOETIN BETA [Suspect]
     Dosage: LAST DOSE PRIOR TO SAE: 14 JANUARY 2011.
     Route: 042
  8. IRON GLUCONATE [Concomitant]
     Dates: start: 20100915
  9. METHOXY POLYETHYLENE GLYCOL-EPOETIN BETA [Suspect]
     Dosage: LAST DOSE PRIOR TO SAE:15 NOVEMBER 2010, DOSAGE FORM: PFS
     Route: 042
  10. PARICALCITOL [Concomitant]
     Dosage: REPORTED AS PARACALCITOL
     Dates: start: 20101106
  11. VERAPAMIL [Concomitant]
  12. TELMISARTAN [Concomitant]
     Dates: start: 20101203
  13. RISEDRONIC ACID [Concomitant]
     Dates: start: 20090804
  14. METOPROLOL [Concomitant]
     Dates: start: 20100702
  15. PREDNISONE [Concomitant]
     Dates: start: 20100417
  16. CARVEDILOL [Concomitant]
     Dates: start: 20100531
  17. PRAVASTATIN [Concomitant]
     Dates: start: 20110113
  18. DARBEPOETIN ALFA [Suspect]
     Dosage: NURSE MISTAKE ON 15 DEC 2010, DARBEPOTIN ALFA (BATCH 1016812) WAS ADMINISTERED.
     Route: 065
     Dates: start: 20101215
  19. TORVAST [Concomitant]
     Dates: start: 20100517
  20. CLOPIDOGREL [Concomitant]
     Dates: start: 20090115
  21. SEVELAMER [Concomitant]
     Dates: start: 20090804
  22. RISEDRONIC ACID [Concomitant]
     Dosage: TOTAL DOSE: 70 MG
     Dates: start: 20100122
  23. DIGOXIN [Concomitant]
     Dosage: TDD: 625 GU
     Dates: start: 20100702, end: 20101124
  24. AMLODIPINE [Concomitant]
     Dates: start: 20101227

REACTIONS (10)
  - MYOCARDIAL INFARCTION [None]
  - BRONCHOPNEUMONIA [None]
  - CEREBROVASCULAR ACCIDENT [None]
  - ANGINA PECTORIS [None]
  - CONFUSIONAL STATE [None]
  - CHRONIC MYELOID LEUKAEMIA [None]
  - CEREBRAL ATROPHY [None]
  - HEART VALVE CALCIFICATION [None]
  - VENTRICULAR FLUTTER [None]
  - WRONG DRUG ADMINISTERED [None]
